FAERS Safety Report 7806402-5 (Version None)
Quarter: 2011Q4

REPORT INFORMATION
  Report Type: 
  Country: None (occurrence: None)
  Receive Date: 20111011
  Receipt Date: 20110930
  Transmission Date: 20120403
  Serious: Yes (Death, Hospitalization)
  Sender: FDA-Public Use
  Company Number: CL-SANOFI-AVENTIS-2011SA043753

PATIENT
  Age: 70 Year
  Sex: Female
  Weight: 70 kg

DRUGS (7)
  1. SINTROM [Concomitant]
  2. FUROSEMIDE [Concomitant]
  3. DRONEDARONE HCL [Suspect]
     Indication: ATRIAL FIBRILLATION
     Route: 048
     Dates: start: 20110606, end: 20110617
  4. CARVEDILOL [Concomitant]
  5. METFORMIN HYDROCHLORIDE [Concomitant]
  6. ENALAPRIL MALEATE [Concomitant]
  7. ATORVASTATIN [Concomitant]

REACTIONS (4)
  - GASTROINTESTINAL HAEMORRHAGE [None]
  - MULTI-ORGAN FAILURE [None]
  - HYPOVOLAEMIC SHOCK [None]
  - ISCHAEMIC STROKE [None]
